FAERS Safety Report 9323584 (Version 2)
Quarter: 2013Q3

REPORT INFORMATION
  Report Type: Report from Study
  Country: GB (occurrence: GB)
  Receive Date: 20130603
  Receipt Date: 20130828
  Transmission Date: 20140515
  Serious: Yes (Death, Hospitalization)
  Sender: FDA-Public Use
  Company Number: GB-ROCHE-1231102

PATIENT
  Age: 92 Year
  Sex: Male

DRUGS (5)
  1. RANIBIZUMAB [Suspect]
     Indication: AGE-RELATED MACULAR DEGENERATION
     Route: 050
     Dates: start: 20090630
  2. RANIBIZUMAB [Suspect]
     Route: 050
     Dates: start: 20110310
  3. BISOPROLOL [Concomitant]
     Route: 065
     Dates: start: 20020121
  4. CLOPIDOGREL [Concomitant]
     Route: 065
     Dates: start: 20020121
  5. SIMVASTATIN [Concomitant]
     Route: 065
     Dates: start: 20020121

REACTIONS (3)
  - Myocardial ischaemia [Fatal]
  - Lower respiratory tract infection [Fatal]
  - Dehydration [Unknown]
